FAERS Safety Report 23394804 (Version 3)
Quarter: 2024Q1

REPORT INFORMATION
  Report Type: Other
  Country: FR (occurrence: FR)
  Receive Date: 20240112
  Receipt Date: 20240229
  Transmission Date: 20240409
  Serious: Yes (Hospitalization, Other)
  Sender: FDA-Public Use
  Company Number: FR-INCYTE CORPORATION-2024IN000181

PATIENT

DRUGS (23)
  1. TAFASITAMAB [Suspect]
     Active Substance: TAFASITAMAB
     Indication: Diffuse large B-cell lymphoma
     Dosage: 200 MILLIGRAM
     Route: 065
  2. TAFASITAMAB [Suspect]
     Active Substance: TAFASITAMAB
     Dosage: 200 MILLIGRAM
     Route: 065
     Dates: start: 2022, end: 20231002
  3. LENALIDOMIDE [Suspect]
     Active Substance: LENALIDOMIDE
     Indication: Diffuse large B-cell lymphoma
     Dosage: UNK
     Route: 065
     Dates: start: 2022
  4. LENALIDOMIDE [Suspect]
     Active Substance: LENALIDOMIDE
     Dosage: 10 MG BID 3-4 WEEKS
     Route: 065
  5. BACTRIM [Suspect]
     Active Substance: SULFAMETHOXAZOLE\TRIMETHOPRIM
     Indication: COVID-19 pneumonia
     Dosage: UNK
     Route: 065
     Dates: start: 20231010
  6. BACTRIM [Suspect]
     Active Substance: SULFAMETHOXAZOLE\TRIMETHOPRIM
     Dosage: 1 TABLET IN THE MORNING
     Route: 065
  7. BACTRIM [Suspect]
     Active Substance: SULFAMETHOXAZOLE\TRIMETHOPRIM
     Dosage: 1 TABLET IN THE MORNING
     Route: 065
  8. DEXAMETHASONE [Suspect]
     Active Substance: DEXAMETHASONE
     Indication: COVID-19 pneumonia
     Dosage: 6 MILLIGRAM
     Route: 065
     Dates: start: 20231011, end: 20231020
  9. INSULIN NOS [Concomitant]
     Active Substance: INSULIN NOS
     Indication: Product used for unknown indication
     Dosage: 200 IU/ML INJ 70 IU IN THE EVENING FOR 1 MONTH
     Route: 065
  10. INSULIN NOS [Concomitant]
     Active Substance: INSULIN NOS
     Dosage: 200 IU/ML INJ 70 IU IN THE EVENING FOR 1 MONTH
     Route: 065
  11. DICLOFENAC [Concomitant]
     Active Substance: DICLOFENAC
     Indication: Product used for unknown indication
     Dosage: 11.6 MG/G
     Route: 065
  12. DICLOFENAC [Concomitant]
     Active Substance: DICLOFENAC
     Dosage: 11.6 MG/G
     Route: 065
  13. LERCANIDIPINE [Concomitant]
     Active Substance: LERCANIDIPINE
     Indication: Product used for unknown indication
     Dosage: 20 MG TBL 1-0-0 FOR 1 MONTH
     Route: 065
  14. RACECADOTRIL [Concomitant]
     Active Substance: RACECADOTRIL
     Indication: Product used for unknown indication
     Dosage: 100 MG CPS 1-0-0 FOR 10 DAYS
     Route: 065
  15. ACETAMINOPHEN [Concomitant]
     Active Substance: ACETAMINOPHEN
     Indication: Product used for unknown indication
     Dosage: 1 G TBL 1-0-0 FOR 10 DAYS
     Route: 065
  16. LOVENOX [Concomitant]
     Active Substance: ENOXAPARIN SODIUM
     Indication: Product used for unknown indication
     Dosage: 4000 IU IN THE EVENING
     Route: 065
  17. FOLIC ACID [Concomitant]
     Active Substance: FOLIC ACID
     Indication: Product used for unknown indication
     Dosage: 5 MILLIGRAM (1 TAB IN AM)
     Route: 065
  18. DOLIPRANE [Concomitant]
     Active Substance: ACETAMINOPHEN
     Indication: Product used for unknown indication
     Dosage: 1 GRAM AS NEEDED
     Route: 065
  19. OXAZEPAM [Concomitant]
     Active Substance: OXAZEPAM
     Indication: Product used for unknown indication
     Dosage: 10 MG: 0.5 TABLET AS NEEDED
     Route: 065
  20. OXAZEPAM [Concomitant]
     Active Substance: OXAZEPAM
     Dosage: 10 MG: 0.5 TABLET AS NEEDED
     Route: 065
  21. MELATONIN [Concomitant]
     Active Substance: MELATONIN
     Indication: Product used for unknown indication
     Dosage: 2 MILLIGRAM (1 TAB IN THE EVENING)
     Route: 065
  22. ALBUTEROL [Concomitant]
     Active Substance: ALBUTEROL
     Indication: Product used for unknown indication
     Dosage: 5 MG/2.5 ML AS NEEDED
     Route: 065
  23. ALBUTEROL [Concomitant]
     Active Substance: ALBUTEROL
     Dosage: 5 MG/2.5 ML AS NEEDED
     Route: 065

REACTIONS (7)
  - COVID-19 pneumonia [Recovering/Resolving]
  - Respiratory failure [Recovering/Resolving]
  - Acute kidney injury [Recovering/Resolving]
  - Diabetes mellitus inadequate control [Unknown]
  - Stasis dermatitis [Unknown]
  - Therapy partial responder [Recovered/Resolved]
  - Diarrhoea [Unknown]

NARRATIVE: CASE EVENT DATE: 20230501
